FAERS Safety Report 4938459-3 (Version None)
Quarter: 2006Q1

REPORT INFORMATION
  Report Type: 
  Country: None (occurrence: None)
  Receive Date: 20060309
  Receipt Date: 20050313
  Transmission Date: 20060701
  Serious: No
  Sender: FDA-Public Use
  Company Number: US-GLAXOSMITHKLINE-A0550606A

PATIENT
  Age: 59 Year
  Sex: Female

DRUGS (1)
  1. CONTAC 12-HOUR COLD CAPSULE [Suspect]

REACTIONS (3)
  - DRUG INEFFECTIVE [None]
  - HEART RATE INCREASED [None]
  - TREMOR [None]
